FAERS Safety Report 14314405 (Version 1)
Quarter: 2017Q4

REPORT INFORMATION
  Report Type: Spontaneous
  Country: GR (occurrence: GR)
  Receive Date: 20171221
  Receipt Date: 20171221
  Transmission Date: 20180321
  Serious: Yes (Hospitalization)
  Sender: FDA-Public Use
  Company Number: GR-BRISTOL-MYERS SQUIBB COMPANY-BMS-2017-111544

PATIENT
  Age: 77 Year
  Sex: Female
  Weight: 57 kg

DRUGS (4)
  1. T4 [Concomitant]
     Active Substance: LEVOTHYROXINE
     Indication: THYROIDITIS
     Dosage: 1 DF, QD
     Route: 048
  2. ORENCIA [Suspect]
     Active Substance: ABATACEPT
     Indication: RHEUMATOID ARTHRITIS
     Dosage: 125 MG, QWK
     Route: 058
     Dates: start: 20150331, end: 20170525
  3. PREZOLON [Concomitant]
     Active Substance: PREDNISOLONE
     Indication: RHEUMATOID ARTHRITIS
     Dosage: 5 MG, QD
     Route: 048
  4. TILDIEM [Concomitant]
     Active Substance: DILTIAZEM HYDROCHLORIDE
     Indication: HYPERTENSION
     Dosage: 60 MG, QD
     Route: 048

REACTIONS (1)
  - Lung infiltration [Recovered/Resolved]

NARRATIVE: CASE EVENT DATE: 201703
